FAERS Safety Report 5213688-2 (Version None)
Quarter: 2007Q1

REPORT INFORMATION
  Report Type: 
  Country: None (occurrence: None)
  Receive Date: 20070119
  Receipt Date: 20070111
  Transmission Date: 20070707
  Serious: Yes (Other)
  Sender: FDA-Public Use
  Company Number: DE-PFIZER INC-2007003454

PATIENT
  Sex: Female
  Weight: 52.2 kg

DRUGS (4)
  1. ZOLOFT [Suspect]
     Indication: DEPRESSION
     Dates: start: 20030101, end: 20070105
  2. ZOLOFT [Suspect]
     Indication: PANIC ATTACK
  3. TRAMADOL HCL [Suspect]
     Indication: PAIN MANAGEMENT
     Dates: start: 20050601, end: 20050801
  4. PERCOCET [Suspect]
     Indication: PAIN MANAGEMENT

REACTIONS (3)
  - GRAND MAL CONVULSION [None]
  - PAIN [None]
  - SURGERY [None]
